FAERS Safety Report 25968900 (Version 1)
Quarter: 2025Q4

REPORT INFORMATION
  Report Type: Spontaneous
  Country: EU (occurrence: EU)
  Receive Date: 20251028
  Receipt Date: 20251028
  Transmission Date: 20260117
  Serious: Yes (Other)
  Sender: AUROBINDO
  Company Number: EU-LRB-01092414

PATIENT
  Age: 93 Year
  Sex: Male
  Weight: 67.8 kg

DRUGS (1)
  1. OXYCODONE HYDROCHLORIDE [Suspect]
     Active Substance: OXYCODONE HYDROCHLORIDE
     Indication: Contusion
     Dosage: 1 DOSAGE FORM I(I.E., AT MOMENTS OF MOBILIZING)
     Route: 048
     Dates: start: 20250921, end: 20250923

REACTIONS (1)
  - Delirium [Recovering/Resolving]
